FAERS Safety Report 6567995-1 (Version None)
Quarter: 2010Q1

REPORT INFORMATION
  Report Type: 
  Country: None (occurrence: None)
  Receive Date: 20100203
  Receipt Date: 20100202
  Transmission Date: 20100710
  Serious: Yes (Other)
  Sender: FDA-Public Use
  Company Number: TR-BRISTOL-MYERS SQUIBB COMPANY-14948178

PATIENT
  Age: 76 Year
  Sex: Male

DRUGS (1)
  1. MITOMYCIN [Suspect]
     Indication: BLADDER CANCER
     Dosage: INJECTION 40MG OF MITOMYCIN IN 50ML OF SALINE
     Route: 040

REACTIONS (3)
  - BLADDER NECROSIS [None]
  - BLADDER PERFORATION [None]
  - CYSTITIS [None]
